FAERS Safety Report 5525450-1 (Version None)
Quarter: 2007Q4

REPORT INFORMATION
  Report Type: 
  Country: None (occurrence: None)
  Receive Date: 20071119
  Receipt Date: 20071106
  Transmission Date: 20080405
  Serious: Yes (Death, Other)
  Sender: FDA-Public Use
  Company Number: GXKR2007JP09542

PATIENT
  Age: 54 Year
  Sex: Female

DRUGS (7)
  1. METHOTREXATE [Suspect]
     Indication: PROPHYLAXIS AGAINST GRAFT VERSUS HOST DISEASE
     Dosage: SHORT-TERM
  2. CICLOSPORIN (NGX)(CICLOSPRORIN) UNKNOWN [Suspect]
     Indication: PROPHYLAXIS AGAINST GRAFT VERSUS HOST DISEASE
     Dosage: SHORT-TERM
  3. PREDNISOLONE [Suspect]
     Indication: ACUTE GRAFT VERSUS HOST DISEASE
  4. CYCLOPHOSPHAMIDE [Suspect]
     Indication: PROPHYLAXIS AGAINST GRAFT VERSUS HOST DISEASE
  5. IMATINIB(IMATINIB) [Suspect]
     Indication: CHRONIC MYELOID LEUKAEMIA
  6. TRIMETHOPRIM [Concomitant]
  7. SULFAMETHOXAZOLE [Concomitant]

REACTIONS (6)
  - ACUTE GRAFT VERSUS HOST DISEASE IN LIVER [None]
  - CEREBRAL TOXOPLASMOSIS [None]
  - CHRONIC MYELOID LEUKAEMIA [None]
  - LEUKAEMIA RECURRENT [None]
  - PNEUMONIA BACTERIAL [None]
  - SEPSIS [None]
